FAERS Safety Report 7989282-7 (Version None)
Quarter: 2011Q4

REPORT INFORMATION
  Report Type: 
  Country: None (occurrence: None)
  Receive Date: 20111216
  Receipt Date: 20111216
  Transmission Date: 20120403
  Serious: Yes (Hospitalization)
  Sender: FDA-Public Use
  Company Number: None

PATIENT
  Sex: Male
  Weight: 143.2 kg

DRUGS (4)
  1. RITUXIMAB (MOAB C2B8 ANTI CD20, CHIMERIC) [Suspect]
     Dosage: 1069 MG
     Dates: end: 20111102
  2. VANCOMYCIN HYCHLORIDE [Concomitant]
  3. ACYCLOVIR [Concomitant]
  4. FLUDARABINE PHOSPHATE [Suspect]
     Dosage: 355 MG
     Dates: end: 20111106

REACTIONS (3)
  - FEBRILE NEUTROPENIA [None]
  - RENAL FAILURE ACUTE [None]
  - GENERALISED OEDEMA [None]
